FAERS Safety Report 4975033-7 (Version None)
Quarter: 2006Q2

REPORT INFORMATION
  Report Type: 
  Country: None (occurrence: None)
  Receive Date: 20060414
  Receipt Date: 20060414
  Transmission Date: 20061013
  Serious: Yes (Life-Threatening, Hospitalization)
  Sender: FDA-Public Use
  Company Number: None

PATIENT
  Sex: Female

DRUGS (1)
  1. FOSPHENYTOIN SODIUM [Suspect]
     Indication: CONVULSION PROPHYLAXIS
     Dosage: 200 MG   Q12H   IV
     Route: 042
     Dates: start: 20060217, end: 20060219

REACTIONS (4)
  - COMA [None]
  - DISORIENTATION [None]
  - DRUG TOXICITY [None]
  - SOMNOLENCE [None]
